FAERS Safety Report 4336352-0 (Version None)
Quarter: 2004Q2

REPORT INFORMATION
  Report Type: 
  Country: None (occurrence: None)
  Receive Date: 20040407
  Receipt Date: 20040318
  Transmission Date: 20050107
  Serious: No
  Sender: FDA-Public Use
  Company Number: USA040361208

PATIENT
  Age: 52 Year
  Sex: Female

DRUGS (4)
  1. XIGRIS [Suspect]
     Indication: SEPSIS
     Dates: start: 20040308
  2. VANCOMYCIN [Concomitant]
  3. LEVOFLOXACIN [Concomitant]
  4. LOVENOX [Concomitant]

REACTIONS (3)
  - INTERNATIONAL NORMALISED RATIO DECREASED [None]
  - MEDICATION ERROR [None]
  - PROTHROMBIN TIME PROLONGED [None]
